FAERS Safety Report 6445612-9 (Version None)
Quarter: 2009Q4

REPORT INFORMATION
  Report Type: 
  Country: None (occurrence: None)
  Receive Date: 20091118
  Receipt Date: 20091118
  Transmission Date: 20100525
  Serious: Yes (Other)
  Sender: FDA-Public Use
  Company Number: None

PATIENT
  Sex: Female
  Weight: 53.5244 kg

DRUGS (1)
  1. METOPROLOL TARTRATE [Suspect]
     Indication: MIGRAINE PROPHYLAXIS
     Dosage: 25 MG 1/DAY MOUTH
     Route: 048
     Dates: start: 20090706, end: 20090923

REACTIONS (1)
  - ANORGASMIA [None]
